FAERS Safety Report 4726040-0 (Version None)
Quarter: 2005Q3

REPORT INFORMATION
  Report Type: 
  Country: None (occurrence: None)
  Receive Date: 20050725
  Receipt Date: 20050714
  Transmission Date: 20060218
  Serious: Yes (Disabling)
  Sender: FDA-Public Use
  Company Number: 2005-130482-NL

PATIENT
  Age: 18 Month
  Sex: Male

DRUGS (3)
  1. PANCURONIUM [Suspect]
     Indication: LIFE SUPPORT
  2. NITROUS OXIDE W/ OXYGEN [Suspect]
     Indication: LIFE SUPPORT
     Route: 055
  3. LOOP DIURETIC [Suspect]

REACTIONS (3)
  - DEAFNESS NEUROSENSORY [None]
  - GASTROOESOPHAGEAL REFLUX DISEASE [None]
  - SPEECH DISORDER DEVELOPMENTAL [None]
